FAERS Safety Report 9179060 (Version 1)
Quarter: 2012Q4

REPORT INFORMATION
  Report Type: 
  Country: ES (occurrence: ES)
  Receive Date: 20121029
  Receipt Date: 20121029
  Transmission Date: 20130627
  Serious: Yes (Other)
  Sender: FDA-Public Use
  Company Number: ES-ROCHE-1145953

PATIENT
  Age: 48 Year
  Sex: Female

DRUGS (2)
  1. TRASTUZUMAB [Suspect]
     Indication: BREAST CANCER
     Route: 050
  2. TRASTUZUMAB [Suspect]
     Route: 050

REACTIONS (1)
  - CNS ventriculitis [Unknown]
